FAERS Safety Report 10697745 (Version 2)
Quarter: 2015Q1

REPORT INFORMATION
  Report Type: Spontaneous
  Country: SA (occurrence: SA)
  Receive Date: 20150108
  Receipt Date: 20150316
  Transmission Date: 20150721
  Serious: Yes (Death, Other)
  Sender: FDA-Public Use
  Company Number: SA-PFIZER INC-2015002409

PATIENT
  Sex: Male
  Weight: 54 kg

DRUGS (4)
  1. MORPHIN [Concomitant]
     Active Substance: MORPHINE
     Indication: PAIN MANAGEMENT
     Dosage: 6 MG, EVERY 6 HOURS
     Route: 048
     Dates: start: 201407
  2. CRIZOTINIB [Suspect]
     Active Substance: CRIZOTINIB
     Indication: LUNG ADENOCARCINOMA
     Dosage: 250 MG, 2X/DAY
     Route: 048
     Dates: start: 201409
  3. FENTANYL. [Concomitant]
     Active Substance: FENTANYL
     Indication: PAIN MANAGEMENT
     Dosage: 0.012 MG, EVERY 72 HRS
     Dates: start: 201411
  4. ENOXAPARINE [Concomitant]
     Active Substance: ENOXAPARIN
     Indication: PULMONARY EMBOLISM
     Dosage: 60 MG, 2X/DAY
     Route: 058
     Dates: start: 201412

REACTIONS (3)
  - Death [Fatal]
  - Blood testosterone decreased [Unknown]
  - Sexual dysfunction [Unknown]
